FAERS Safety Report 15843694 (Version 1)
Quarter: 2019Q1

REPORT INFORMATION
  Report Type: Spontaneous
  Country: US (occurrence: US)
  Receive Date: 20190118
  Receipt Date: 20190118
  Transmission Date: 20190417
  Serious: No
  Sender: FDA-Public Use
  Company Number: US-SUNOVION-2019SUN000126

PATIENT

DRUGS (4)
  1. ZOLOFT [Suspect]
     Active Substance: SERTRALINE HYDROCHLORIDE
     Dosage: UNK
  2. LITHIUM. [Suspect]
     Active Substance: LITHIUM
     Dosage: UNK
  3. LATUDA [Suspect]
     Active Substance: LURASIDONE HYDROCHLORIDE
     Dosage: UNK
     Route: 048
  4. CLONAZEPAM. [Suspect]
     Active Substance: CLONAZEPAM
     Dosage: UNK

REACTIONS (12)
  - Apathy [Unknown]
  - Paraesthesia [Unknown]
  - Depressed mood [Unknown]
  - Fear [Unknown]
  - Agitation [Unknown]
  - Heart rate abnormal [Unknown]
  - Emotional poverty [Unknown]
  - Asthenia [Unknown]
  - Tachyphrenia [Unknown]
  - Anxiety [Unknown]
  - Feeling abnormal [Unknown]
  - Impulsive behaviour [Unknown]
